FAERS Safety Report 10977573 (Version 1)
Quarter: 2015Q1

REPORT INFORMATION
  Report Type: Spontaneous
  Country: GB (occurrence: None)
  Receive Date: 20150330
  Receipt Date: 20150330
  Transmission Date: 20150721
  Serious: Yes (Hospitalization)
  Sender: FDA-Public Use
  Company Number: GB2015K1466SPO

PATIENT
  Age: 73 Year
  Sex: Female

DRUGS (2)
  1. LANSOPRAZOLE. [Suspect]
     Active Substance: LANSOPRAZOLE
     Indication: DYSPEPSIA
     Dosage: 9 DAYS, 30 MG, 1X PER DAY, ORAL
     Route: 048
     Dates: start: 20150301, end: 20150309
  2. RANITIDINE [Concomitant]
     Active Substance: RANITIDINE\RANITIDINE HYDROCHLORIDE

REACTIONS (3)
  - Liver function test abnormal [None]
  - Vomiting [None]
  - Jaundice [None]

NARRATIVE: CASE EVENT DATE: 20150307
